FAERS Safety Report 17643193 (Version 2)
Quarter: 2020Q2

REPORT INFORMATION
  Report Type: Report from Study
  Country: DE (occurrence: DE)
  Receive Date: 20200408
  Receipt Date: 20200417
  Transmission Date: 20200713
  Serious: No
  Sender: FDA-Public Use
  Company Number: NVSC2020DE091071

PATIENT
  Sex: Female
  Weight: 104 kg

DRUGS (3)
  1. COSENTYX [Suspect]
     Active Substance: SECUKINUMAB
     Indication: PSORIATIC ARTHROPATHY
     Dosage: 150 MG (PER APPLICATION)
     Route: 065
     Dates: start: 20171013
  2. CANDESARTAN. [Concomitant]
     Active Substance: CANDESARTAN
     Indication: HYPERTENSION
     Dosage: UNK, QD
     Route: 048
     Dates: start: 20180830
  3. NOVAMINSULFON [Concomitant]
     Active Substance: METAMIZOLE
     Indication: FIBROMYALGIA
     Dosage: 1.5-0-1
     Route: 048
     Dates: start: 20160714

REACTIONS (4)
  - Aphthous ulcer [Recovered/Resolved]
  - Cough [Recovered/Resolved]
  - Nasopharyngitis [Recovered/Resolved]
  - Otitis externa [Recovered/Resolved]

NARRATIVE: CASE EVENT DATE: 201712
